FAERS Safety Report 17532344 (Version 2)
Quarter: 2020Q2

REPORT INFORMATION
  Report Type: Spontaneous
  Country: US (occurrence: US)
  Receive Date: 20200312
  Receipt Date: 20200416
  Transmission Date: 20200713
  Serious: No
  Sender: FDA-Public Use
  Company Number: US-JNJFOC-20200309017

PATIENT
  Sex: Male

DRUGS (1)
  1. ERLEADA [Suspect]
     Active Substance: APALUTAMIDE
     Indication: PRODUCT USED FOR UNKNOWN INDICATION
     Route: 048

REACTIONS (6)
  - Prostatic specific antigen increased [Unknown]
  - Palpitations [Unknown]
  - Product dose omission [Unknown]
  - Arthralgia [Unknown]
  - Chest pain [Unknown]
  - Musculoskeletal pain [Unknown]
